FAERS Safety Report 10902847 (Version 1)
Quarter: 2015Q1

REPORT INFORMATION
  Report Type: Spontaneous
  Country: GB (occurrence: GB)
  Receive Date: 20150310
  Receipt Date: 20150310
  Transmission Date: 20150721
  Serious: Yes (Disabling, Other)
  Sender: FDA-Public Use
  Company Number: GB-GILEAD-2015-0139993

PATIENT
  Age: 69 Year
  Sex: Female
  Weight: 89 kg

DRUGS (9)
  1. IMIPRAMINE [Concomitant]
     Active Substance: IMIPRAMINE
     Dosage: 25 MG, TID
     Route: 048
     Dates: start: 20141118
  2. ISOSORBIDE MONONITRATE. [Concomitant]
     Active Substance: ISOSORBIDE MONONITRATE
     Dosage: 10 MG, BID
     Route: 048
     Dates: start: 20141118
  3. SIMVASTATIN. [Concomitant]
     Active Substance: SIMVASTATIN
     Indication: HYPERCHOLESTEROLAEMIA
     Dosage: 40 MG, QD
     Route: 048
     Dates: start: 20141118
  4. GLYCERYL TRINITRATE [Concomitant]
     Active Substance: NITROGLYCERIN
     Dosage: UNK
     Route: 060
     Dates: start: 20141118
  5. RANOLAZINE [Suspect]
     Active Substance: RANOLAZINE
     Indication: ANGINA PECTORIS
     Dosage: UNK
     Route: 048
     Dates: start: 20140627, end: 201409
  6. ASPIRIN                            /00002701/ [Concomitant]
     Active Substance: ASPIRIN
     Dosage: 75 MG, QD
     Route: 048
  7. BISOPROLOL [Concomitant]
     Active Substance: BISOPROLOL
     Dosage: 5 MG, QD
     Route: 048
     Dates: start: 20141118
  8. COCODAMOL [Concomitant]
     Active Substance: ACETAMINOPHEN\CODEINE PHOSPHATE
     Route: 048
  9. OMEPRAZOLE. [Concomitant]
     Active Substance: OMEPRAZOLE
     Dosage: 20 MG, BID
     Route: 048
     Dates: start: 20141118

REACTIONS (19)
  - Disorientation [Recovered/Resolved]
  - Insomnia [Recovered/Resolved]
  - Gingival pain [Recovered/Resolved]
  - Coordination abnormal [Not Recovered/Not Resolved]
  - Abdominal pain [Recovered/Resolved]
  - Balance disorder [Recovered/Resolved]
  - Lip pain [Recovered/Resolved]
  - Memory impairment [Not Recovered/Not Resolved]
  - Feeling drunk [Recovered/Resolved]
  - Nausea [Recovered/Resolved]
  - Rash [Recovered/Resolved]
  - Porphyria acute [Recovering/Resolving]
  - Nervous system disorder [Not Recovered/Not Resolved]
  - Diarrhoea [Recovered/Resolved]
  - Hallucination, visual [Not Recovered/Not Resolved]
  - Tinnitus [Recovered/Resolved]
  - Swollen tongue [Recovered/Resolved]
  - Paraesthesia [Recovered/Resolved]
  - Chromaturia [Recovered/Resolved]

NARRATIVE: CASE EVENT DATE: 20140630
